FAERS Safety Report 9640972 (Version 1)
Quarter: 2013Q4

REPORT INFORMATION
  Report Type: Report from Study
  Country: US (occurrence: US)
  Receive Date: 20131023
  Receipt Date: 20131023
  Transmission Date: 20140711
  Serious: No
  Sender: FDA-Public Use
  Company Number: US-ABBVIE-13P-163-1120784-00

PATIENT
  Age: 29 Year
  Sex: Female
  Weight: 90.8 kg

DRUGS (7)
  1. LUPRON DEPOT [Suspect]
     Indication: ENDOMETRIOSIS
     Dates: start: 20130711
  2. SYNTHROID [Concomitant]
     Indication: HYPOTHYROIDISM
  3. NUVIGIL [Concomitant]
     Indication: PRODUCT USED FOR UNKNOWN INDICATION
  4. ESCITALOPRAM [Concomitant]
     Indication: PRODUCT USED FOR UNKNOWN INDICATION
  5. KLONOPIN [Concomitant]
     Indication: ANXIETY
  6. PERCOCET [Concomitant]
     Indication: PAIN
  7. NAPROXEN [Concomitant]
     Indication: PAIN

REACTIONS (4)
  - Urinary tract infection [Recovering/Resolving]
  - Insomnia [Not Recovered/Not Resolved]
  - Paraesthesia [Not Recovered/Not Resolved]
  - Paraesthesia [Not Recovered/Not Resolved]
